FAERS Safety Report 6381384-4 (Version None)
Quarter: 2009Q3

REPORT INFORMATION
  Report Type: 
  Country: None (occurrence: None)
  Receive Date: 20090924
  Receipt Date: 20090910
  Transmission Date: 20100115
  Serious: Yes (Death, Hospitalization)
  Sender: FDA-Public Use
  Company Number: 1000008928

PATIENT
  Age: 78 Year
  Sex: Female

DRUGS (11)
  1. CITALOPRAM HYDROBROMIDE [Suspect]
     Indication: DEPRESSION
     Dosage: 20 MG (20 MG,1 IN 1 D),ORAL
     Route: 048
     Dates: start: 20090622, end: 20090813
  2. LOVENOX [Suspect]
     Indication: EMBOLISM
     Dosage: 0.8 MG (0.4 MG,2 IN 1 D), SUBCUTANEOUS
     Route: 058
     Dates: start: 20090723, end: 20090729
  3. LOVENOX [Suspect]
     Indication: PHLEBITIS
     Dosage: 0.8 MG (0.4 MG,2 IN 1 D), SUBCUTANEOUS
     Route: 058
     Dates: start: 20090723, end: 20090729
  4. COUMADIN [Suspect]
     Indication: PHLEBITIS
     Dosage: 4 MG (2 MG,2 IN 1 D),ORAL
     Route: 048
     Dates: start: 20090723, end: 20090729
  5. COUMADIN [Suspect]
     Indication: PULMONARY EMBOLISM
     Dosage: 4 MG (2 MG,2 IN 1 D),ORAL
     Route: 048
     Dates: start: 20090723, end: 20090729
  6. ACETAMINOPHEN [Concomitant]
  7. TARDYFERON [Concomitant]
  8. RISPERDAL [Concomitant]
  9. NEXIUM [Concomitant]
  10. ISOPTIN [Concomitant]
  11. LEVOTHYROXINE SODIUM [Concomitant]

REACTIONS (3)
  - FALL [None]
  - HEAD INJURY [None]
  - SUBDURAL HAEMATOMA [None]
